FAERS Safety Report 13432529 (Version 1)
Quarter: 2017Q2

REPORT INFORMATION
  Report Type: Spontaneous
  Country: US (occurrence: US)
  Receive Date: 20170412
  Receipt Date: 20170412
  Transmission Date: 20170830
  Serious: No
  Sender: FDA-Public Use
  Company Number: US-BAYER-2017-070614

PATIENT
  Age: 39 Year
  Sex: Female

DRUGS (1)
  1. ULTRAVIST [Suspect]
     Active Substance: IOPROMIDE
     Indication: HAEMATURIA
     Dosage: 30 ML, UNK
     Route: 042
     Dates: start: 20170411

REACTIONS (1)
  - Rash [None]

NARRATIVE: CASE EVENT DATE: 20170411
